FAERS Safety Report 5601579-4 (Version None)
Quarter: 2008Q1

REPORT INFORMATION
  Report Type: 
  Country: None (occurrence: None)
  Receive Date: 20080124
  Receipt Date: 20080121
  Transmission Date: 20080703
  Serious: Yes (Life-Threatening, Hospitalization)
  Sender: FDA-Public Use
  Company Number: NL-ASTRAZENECA-2008AC00258

PATIENT
  Age: 770 Month
  Sex: Female
  Weight: 85 kg

DRUGS (8)
  1. CRESTOR [Suspect]
     Indication: PROPHYLAXIS
     Route: 048
     Dates: start: 20070801, end: 20071218
  2. PLAVIX [Concomitant]
     Dates: start: 20070801, end: 20071224
  3. ASCAL CARDIO BRISPER [Concomitant]
     Dates: start: 20070801
  4. SELOKEEN ZOC [Concomitant]
     Route: 048
     Dates: start: 20070801, end: 20071224
  5. PANTOZOL [Concomitant]
     Dates: start: 20070801, end: 20071224
  6. COVERSYL [Concomitant]
     Dates: start: 20070801, end: 20071224
  7. FERROFUMARAAT [Concomitant]
     Dates: start: 20070801, end: 20071224
  8. BROMAZEPAMUM [Concomitant]
     Dates: start: 20070801, end: 20071224

REACTIONS (1)
  - HEPATIC FAILURE [None]
